FAERS Safety Report 7038986-1 (Version None)
Quarter: 2010Q4

REPORT INFORMATION
  Report Type: 
  Country: None (occurrence: None)
  Receive Date: 20101012
  Receipt Date: 20101002
  Transmission Date: 20110411
  Serious: Yes (Disabling, Other)
  Sender: FDA-Public Use
  Company Number: US-US-EMD SERONO, INC.-7020099

PATIENT
  Sex: Male

DRUGS (3)
  1. REBIF [Suspect]
     Indication: MULTIPLE SCLEROSIS
     Route: 058
     Dates: start: 20080620
  2. ZOCOR [Concomitant]
     Indication: BLOOD CHOLESTEROL INCREASED
  3. CAPTROPRIL [Concomitant]
     Indication: HYPERTENSION

REACTIONS (6)
  - DEAFNESS NEUROSENSORY [None]
  - HYPERTENSION [None]
  - INNER EAR DISORDER [None]
  - NAUSEA [None]
  - VERTIGO [None]
  - VOMITING [None]
